FAERS Safety Report 6078062-8 (Version None)
Quarter: 2009Q1

REPORT INFORMATION
  Report Type: 
  Country: None (occurrence: None)
  Receive Date: 20090213
  Receipt Date: 20090206
  Transmission Date: 20090719
  Serious: Yes (Death, Hospitalization)
  Sender: FDA-Public Use
  Company Number: US-GILEAD-2009-0020030

PATIENT
  Sex: Male

DRUGS (10)
  1. LETAIRIS [Suspect]
     Indication: PULMONARY ARTERIAL HYPERTENSION
     Route: 048
     Dates: start: 20081029
  2. LASIX [Concomitant]
  3. SPIRIVA [Concomitant]
  4. GLUCOVANCE [Concomitant]
  5. ZYRTEC [Concomitant]
  6. MUCINEX [Concomitant]
  7. ACCUPRIL [Concomitant]
  8. ATIVAN [Concomitant]
  9. PREVACID [Concomitant]
  10. FERROUS SULFATE TAB [Concomitant]

REACTIONS (1)
  - RESPIRATORY FAILURE [None]
